FAERS Safety Report 6187156-8 (Version None)
Quarter: 2009Q2

REPORT INFORMATION
  Report Type: 
  Country: None (occurrence: None)
  Receive Date: 20090512
  Receipt Date: 20090501
  Transmission Date: 20091009
  Serious: Yes (Hospitalization)
  Sender: FDA-Public Use
  Company Number: CA-BAXTER-2009BH008147

PATIENT
  Age: 39 Year
  Sex: Male

DRUGS (2)
  1. HEPARIN [Suspect]
     Indication: PROPHYLAXIS
     Route: 058
  2. ABCIXIMAB [Concomitant]
     Indication: PROPHYLAXIS
     Route: 042

REACTIONS (2)
  - HEPARIN-INDUCED THROMBOCYTOPENIA [None]
  - WHITE CLOT SYNDROME [None]
